FAERS Safety Report 16627435 (Version 2)
Quarter: 2019Q3

REPORT INFORMATION
  Report Type: Spontaneous
  Country: US (occurrence: US)
  Receive Date: 20190724
  Receipt Date: 20190926
  Transmission Date: 20191004
  Serious: No
  Sender: FDA-Public Use
  Company Number: US-PFIZER INC-2019278618

PATIENT
  Age: 69 Year
  Sex: Female
  Weight: 75 kg

DRUGS (7)
  1. LETROZOLE. [Concomitant]
     Active Substance: LETROZOLE
     Indication: BLOOD OESTROGEN
     Dosage: 2.5 MG, 1X/DAY
     Dates: start: 20180401
  2. TURKEY TAIL MUSHROOM [Concomitant]
     Dosage: UNK
  3. CITRACAL + D [CALCIUM CITRATE;COLECALCIFEROL] [Concomitant]
     Active Substance: CALCIUM CITRATE\CHOLECALCIFEROL
     Dosage: UNK (CALCIUM CITRATE 650 MG + COLECALCIFEROL 25 MG)
  4. DICLOFENAC SODIUM. [Concomitant]
     Active Substance: DICLOFENAC SODIUM
     Dosage: 75 MG, 1X/DAY
  5. IBRANCE [Suspect]
     Active Substance: PALBOCICLIB
     Indication: BREAST CANCER FEMALE
     Dosage: 125 MG, UNK
     Dates: start: 20190523, end: 2019
  6. DICLOFENAC [Concomitant]
     Active Substance: DICLOFENAC
     Indication: ARTHRITIS
  7. DICLOFENAC [Concomitant]
     Active Substance: DICLOFENAC
     Indication: INFLAMMATION
     Dosage: UNK
     Dates: start: 20171215

REACTIONS (1)
  - Dizziness [Recovering/Resolving]

NARRATIVE: CASE EVENT DATE: 201905
